FAERS Safety Report 9167203 (Version 2)
Quarter: 2013Q2

REPORT INFORMATION
  Report Type: Spontaneous
  Country: US (occurrence: None)
  Receive Date: 20130305
  Receipt Date: 20130404
  Transmission Date: 20140414
  Serious: Yes (Hospitalization)
  Sender: FDA-Public Use
  Company Number: 2013-000566

PATIENT
  Age: 19 Year
  Sex: Male
  Weight: 64.4 kg

DRUGS (2)
  1. ASACOL [Suspect]
     Indication: COLITIS ULCERATIVE
     Dosage: 1200 MG THREE TIMES DAILY, ORAL
     Route: 048
     Dates: start: 20130131, end: 20130225
  2. INSULIN (INSULIN) [Concomitant]

REACTIONS (5)
  - Vomiting [None]
  - Abdominal pain upper [None]
  - Diarrhoea [None]
  - Lethargy [None]
  - Dehydration [None]
